FAERS Safety Report 6747892-9 (Version None)
Quarter: 2010Q2

REPORT INFORMATION
  Report Type: 
  Country: None (occurrence: None)
  Receive Date: 20100528
  Receipt Date: 20100520
  Transmission Date: 20101027
  Serious: Yes (Death, Hospitalization)
  Sender: FDA-Public Use
  Company Number: JP-ABBOTT-10P-087-0640356-00

PATIENT
  Sex: Female
  Weight: 34 kg

DRUGS (13)
  1. HUMIRA [Suspect]
     Indication: RHEUMATOID ARTHRITIS
     Route: 058
     Dates: start: 20091204, end: 20100319
  2. CELECOXIB [Concomitant]
     Indication: RHEUMATOID ARTHRITIS
     Dates: start: 20070628, end: 20100319
  3. ISONIAZID [Concomitant]
     Indication: ANTIBIOTIC PROPHYLAXIS
     Route: 048
     Dates: start: 20091204, end: 20100319
  4. ISONIAZID [Concomitant]
     Indication: PROPHYLAXIS
  5. ALENDRONATE SODIUM [Concomitant]
     Indication: OSTEOPOROSIS
     Dates: start: 20070726, end: 20100319
  6. METHOTREXATE [Concomitant]
     Indication: RHEUMATOID ARTHRITIS
     Dates: start: 20070726, end: 20100319
  7. METHOTREXATE [Concomitant]
     Dates: start: 20070701, end: 20090301
  8. METHOTREXATE [Concomitant]
     Dates: start: 20090301
  9. METHOTREXATE [Concomitant]
     Dates: end: 20100101
  10. METHOTREXATE [Concomitant]
     Dates: start: 20100122
  11. FOLIC ACID [Concomitant]
     Indication: VITAMIN SUPPLEMENTATION
     Dates: start: 20070726, end: 20100319
  12. FOLIC ACID [Concomitant]
     Indication: PROPHYLAXIS
  13. BUCILLAMINE [Concomitant]
     Indication: RHEUMATOID ARTHRITIS
     Dates: start: 20060101

REACTIONS (1)
  - PNEUMONIA BACTERIAL [None]
